FAERS Safety Report 19926123 (Version 1)
Quarter: 2021Q4

REPORT INFORMATION
  Report Type: Spontaneous
  Country: US (occurrence: US)
  Receive Date: 20211006
  Receipt Date: 20211006
  Transmission Date: 20220303
  Serious: No
  Sender: FDA-Public Use
  Company Number: US-MYLANLABS-2021M1061501

PATIENT
  Age: 19 Year
  Sex: Male

DRUGS (1)
  1. VENLAFAXINE HYDROCHLORIDE [Suspect]
     Active Substance: VENLAFAXINE HYDROCHLORIDE
     Indication: Product used for unknown indication
     Dosage: 10 PELLETS OUT OF THE CAPSULE
     Route: 048

REACTIONS (3)
  - Weight decreased [Unknown]
  - Hypersomnia [Unknown]
  - Withdrawal syndrome [Not Recovered/Not Resolved]
